FAERS Safety Report 9090568 (Version 2)
Quarter: 2013Q1

REPORT INFORMATION
  Report Type: Spontaneous
  Country: SK (occurrence: SK)
  Receive Date: 20130131
  Receipt Date: 20130201
  Transmission Date: 20140127
  Serious: Yes (Hospitalization)
  Sender: FDA-Public Use
  Company Number: SK-ROCHE-1185723

PATIENT
  Age: 74 Year
  Sex: Female

DRUGS (1)
  1. ACTILYSE [Suspect]
     Indication: PULMONARY EMBOLISM
     Route: 042

REACTIONS (2)
  - Haematoma [Unknown]
  - Radial nerve compression [Unknown]
